FAERS Safety Report 5315225-0 (Version None)
Quarter: 2007Q2

REPORT INFORMATION
  Report Type: 
  Country: None (occurrence: None)
  Receive Date: 20070502
  Receipt Date: 20070420
  Transmission Date: 20071010
  Serious: Yes (Other)
  Sender: FDA-Public Use
  Company Number: DE-PFIZER INC-2007024567

PATIENT
  Sex: Female
  Weight: 60 kg

DRUGS (2)
  1. ZELDOX (CAPSULES) [Suspect]
     Indication: SCHIZOPHRENIA
     Route: 048
  2. ZELDOX (CAPSULES) [Suspect]
     Indication: SCHIZOPHRENIA, RESIDUAL TYPE

REACTIONS (4)
  - DRUG DEPENDENCE [None]
  - DRUG LEVEL INCREASED [None]
  - NO ADVERSE EFFECT [None]
  - OVERDOSE [None]
